FAERS Safety Report 13312139 (Version 2)
Quarter: 2017Q2

REPORT INFORMATION
  Report Type: Spontaneous
  Country: FR (occurrence: FR)
  Receive Date: 20170309
  Receipt Date: 20170615
  Transmission Date: 20170830
  Serious: Yes (Death, Other)
  Sender: FDA-Public Use
  Company Number: FR-SAOL THERAPEUTICS-2017SAO00410

PATIENT
  Age: 46 Year
  Sex: Male

DRUGS (4)
  1. ALCOHOL. [Suspect]
     Active Substance: ALCOHOL
  2. LIORESAL [Suspect]
     Active Substance: BACLOFEN
  3. IRBESARTAN. [Suspect]
     Active Substance: IRBESARTAN
  4. SERTRALINE [Suspect]
     Active Substance: SERTRALINE HYDROCHLORIDE

REACTIONS (2)
  - Asphyxia [None]
  - Toxicity to various agents [Fatal]
